FAERS Safety Report 9330881 (Version 1)
Quarter: 2013Q2

REPORT INFORMATION
  Report Type: Spontaneous
  Country: US (occurrence: None)
  Receive Date: 20130531
  Receipt Date: 20130531
  Transmission Date: 20140414
  Serious: Yes (Other)
  Sender: FDA-Public Use
  Company Number: CA-ALSI-201300138

PATIENT
  Sex: Female

DRUGS (1)
  1. OXYGEN [Suspect]

REACTIONS (1)
  - Burns third degree [None]
